FAERS Safety Report 10462621 (Version 1)
Quarter: 2014Q3

REPORT INFORMATION
  Report Type: Spontaneous
  Country: NO (occurrence: NO)
  Receive Date: 20140918
  Receipt Date: 20140918
  Transmission Date: 20150326
  Serious: Yes (Life-Threatening, Disabling, Other)
  Sender: FDA-Public Use
  Company Number: NO-ELI_LILLY_AND_COMPANY-NO201409004778

PATIENT
  Age: 21 Year
  Sex: Female
  Weight: 60 kg

DRUGS (4)
  1. RISPERDAL [Concomitant]
     Active Substance: RISPERIDONE
     Indication: SCHIZOPHRENIA
     Dosage: UNK
     Dates: start: 20101110, end: 20110315
  2. ZYPREXA [Suspect]
     Active Substance: OLANZAPINE
     Indication: SCHIZOPHRENIA, PARANOID TYPE
     Dosage: 20 MG, BID
     Route: 048
     Dates: start: 20080810, end: 20090205
  3. SEROQUEL [Concomitant]
     Active Substance: QUETIAPINE FUMARATE
     Indication: SCHIZOPHRENIA
     Dosage: UNK
     Dates: start: 20101210, end: 20101215
  4. QUETIAPINE [Concomitant]
     Active Substance: QUETIAPINE

REACTIONS (39)
  - Lid sulcus deepened [Recovering/Resolving]
  - Paraesthesia [Not Recovered/Not Resolved]
  - Derealisation [Not Recovered/Not Resolved]
  - Visual acuity reduced [Not Recovered/Not Resolved]
  - Abdominal distension [Recovering/Resolving]
  - Prescribed overdose [Unknown]
  - Convulsion [Unknown]
  - Diplopia [Not Recovered/Not Resolved]
  - Obesity [Recovering/Resolving]
  - Sensory loss [Not Recovered/Not Resolved]
  - Joint crepitation [Not Recovered/Not Resolved]
  - Pyrexia [Recovered/Resolved]
  - Dysphonia [Recovering/Resolving]
  - Communication disorder [Not Recovered/Not Resolved]
  - Arthritis infective [Recovering/Resolving]
  - Abnormal behaviour [Unknown]
  - Negative thoughts [Not Recovered/Not Resolved]
  - Hearing impaired [Not Recovered/Not Resolved]
  - Wound [Not Recovered/Not Resolved]
  - Back pain [Unknown]
  - Eye movement disorder [Not Recovered/Not Resolved]
  - Anxiety [Not Recovered/Not Resolved]
  - Dyskinesia [Not Recovered/Not Resolved]
  - Trisomy 21 [Not Recovered/Not Resolved]
  - Visual impairment [Unknown]
  - Hallucination [Not Recovered/Not Resolved]
  - Antisocial behaviour [Not Recovered/Not Resolved]
  - Skull fractured base [Unknown]
  - Paralysis [Not Recovered/Not Resolved]
  - Claustrophobia [Not Recovered/Not Resolved]
  - Parkinsonism [Unknown]
  - Abdominal pain [Not Recovered/Not Resolved]
  - Speech disorder [Not Recovered/Not Resolved]
  - Fatigue [Not Recovered/Not Resolved]
  - Blindness transient [Not Recovered/Not Resolved]
  - Suicidal ideation [Unknown]
  - Confusional state [Unknown]
  - Memory impairment [Unknown]
  - Asthenia [Not Recovered/Not Resolved]

NARRATIVE: CASE EVENT DATE: 20080810
